FAERS Safety Report 7879865-7 (Version None)
Quarter: 2011Q4

REPORT INFORMATION
  Report Type: 
  Country: None (occurrence: None)
  Receive Date: 20111101
  Receipt Date: 20111026
  Transmission Date: 20120403
  Serious: Yes (Hospitalization, Other)
  Sender: FDA-Public Use
  Company Number: FR-ROCHE-1006202

PATIENT
  Sex: Female

DRUGS (5)
  1. CLORAZEPATE DIPOTASSIUM [Concomitant]
     Indication: INSOMNIA
  2. PEGASYS [Suspect]
  3. PEGASYS [Suspect]
     Indication: HEPATITIS C
     Dates: start: 20110411
  4. COPEGUS [Suspect]
     Indication: HEPATITIS C
     Dates: start: 20110411
  5. INCIVO [Suspect]
     Indication: HEPATITIS C
     Dates: start: 20110411

REACTIONS (8)
  - VIITH NERVE PARALYSIS [None]
  - CEREBELLAR SYNDROME [None]
  - PARKINSONISM [None]
  - THROMBOCYTOPENIA [None]
  - INDIFFERENCE [None]
  - DYSARTHRIA [None]
  - FALL [None]
  - INCOHERENT [None]
